FAERS Safety Report 9783971 (Version 1)
Quarter: 2013Q4

REPORT INFORMATION
  Report Type: Spontaneous
  Country: FR (occurrence: FR)
  Receive Date: 20131226
  Receipt Date: 20131226
  Transmission Date: 20140711
  Serious: Yes (Other)
  Sender: FDA-Public Use
  Company Number: FR-PFIZER INC-2013363260

PATIENT
  Age: 64 Year
  Sex: Female

DRUGS (4)
  1. XANAX [Suspect]
     Dosage: 0.5 MG, 3X/DAY
     Dates: start: 20131101
  2. SEROPLEX [Suspect]
     Dosage: 40 MG, 1X/DAY
     Route: 048
     Dates: start: 20131101
  3. NOCTAMIDE [Suspect]
     Dosage: 2 MG, 1X/DAY
     Route: 048
     Dates: start: 20131101
  4. LOVENOX [Suspect]
     Dosage: UNK
     Dates: start: 20131118

REACTIONS (1)
  - Neutropenia [Not Recovered/Not Resolved]
